FAERS Safety Report 6913351-3 (Version None)
Quarter: 2010Q3

REPORT INFORMATION
  Report Type: 
  Country: None (occurrence: None)
  Receive Date: 20100809
  Receipt Date: 20100804
  Transmission Date: 20110219
  Serious: Yes (Death, Hospitalization)
  Sender: FDA-Public Use
  Company Number: PHHY2010US46393

PATIENT
  Sex: Female
  Weight: 66 kg

DRUGS (2)
  1. EXJADE [Suspect]
     Indication: IRON METABOLISM DISORDER
     Dosage: 1750 MG, QD
     Route: 048
     Dates: start: 20060101, end: 20100601
  2. PENICILLIN [Concomitant]
     Dosage: 250 MG, BID
     Route: 048
     Dates: end: 20100601

REACTIONS (3)
  - ANAEMIA [None]
  - CARDIAC FAILURE [None]
  - IRON OVERLOAD [None]
